FAERS Safety Report 9082273 (Version 2)
Quarter: 2013Q1

REPORT INFORMATION
  Report Type: Report from Study
  Country: PH (occurrence: PH)
  Receive Date: 20130130
  Receipt Date: 20130228
  Transmission Date: 20140127
  Serious: Yes (Hospitalization)
  Sender: FDA-Public Use
  Company Number: PH-ASTELLAS-2013JP000559

PATIENT
  Sex: Male

DRUGS (1)
  1. MICAFUNGIN INJECTION [Suspect]
     Indication: SYSTEMIC CANDIDA
     Dosage: 100 MG, UNKNOWN/D
     Route: 041
     Dates: start: 20121014, end: 20121022

REACTIONS (2)
  - Diaphragmatic hernia [Recovering/Resolving]
  - Pneumothorax [Recovering/Resolving]
